FAERS Safety Report 9051492 (Version 1)
Quarter: 2013Q1

REPORT INFORMATION
  Report Type: Spontaneous
  Country: US (occurrence: US)
  Receive Date: 20130206
  Receipt Date: 20130206
  Transmission Date: 20140127
  Serious: No
  Sender: FDA-Public Use
  Company Number: US-ALLERGAN-1216073US

PATIENT
  Age: 62 Year
  Sex: Female

DRUGS (5)
  1. RESTASIS [Suspect]
     Indication: DRY EYE
     Dosage: 2 GTT, BID
     Route: 047
     Dates: start: 201210
  2. LISINOPRIL [Concomitant]
     Indication: HYPERTENSION
     Dosage: UNK UNK, QD
     Route: 048
  3. ALLEGRA                            /01314201/ [Concomitant]
     Indication: HYPERSENSITIVITY
     Dosage: UNK
     Route: 048
  4. FLONASE [Concomitant]
     Indication: HYPERSENSITIVITY
     Dosage: UNK UNK, PRN
     Route: 045
  5. LORAZEPAM [Concomitant]
     Indication: ANXIETY
     Dosage: UNK
     Route: 048

REACTIONS (3)
  - Scleral hyperaemia [Recovering/Resolving]
  - Foreign body sensation in eyes [Unknown]
  - Vision blurred [Unknown]
